FAERS Safety Report 9056795 (Version 1)
Quarter: 2013Q1

REPORT INFORMATION
  Report Type: Spontaneous
  Country: FR (occurrence: FR)
  Receive Date: 20130201
  Receipt Date: 20130201
  Transmission Date: 20140127
  Serious: Yes (Other)
  Sender: FDA-Public Use
  Company Number: FR-BRISTOL-MYERS SQUIBB COMPANY-17332594

PATIENT
  Age: 75 Year
  Sex: Male

DRUGS (2)
  1. ERBITUX SOLN FOR INF [Suspect]
     Indication: LIP AND/OR ORAL CAVITY CANCER
     Route: 042
     Dates: start: 20120709, end: 20121226
  2. CARBOPLATIN [Concomitant]
     Indication: LIP AND/OR ORAL CAVITY CANCER
     Dosage: SOLN FOR INJ,LAST DOSE:26DEC12,TOTAL:6 COURSES
     Route: 042
     Dates: start: 20120709

REACTIONS (1)
  - Cardiac failure [Unknown]
